FAERS Safety Report 5518455-8 (Version None)
Quarter: 2007Q4

REPORT INFORMATION
  Report Type: 
  Country: None (occurrence: None)
  Receive Date: 20071115
  Receipt Date: 20071106
  Transmission Date: 20080405
  Serious: Yes (Disabling, Other)
  Sender: FDA-Public Use
  Company Number: FR-PFIZER INC-2007052187

PATIENT
  Age: 82 Year
  Sex: Male

DRUGS (5)
  1. ZOXAN LP [Suspect]
     Indication: ADENOMA BENIGN
     Route: 048
     Dates: start: 20070101, end: 20070515
  2. ZOXAN LP [Suspect]
     Indication: BENIGN PROSTATIC HYPERPLASIA
  3. OXAZEPAM [Concomitant]
  4. GINKGO BILOBA EXTRACT [Concomitant]
  5. FLECAINIDE ACETATE [Concomitant]

REACTIONS (4)
  - COLITIS ISCHAEMIC [None]
  - COLONIC STENOSIS [None]
  - CONDITION AGGRAVATED [None]
  - DIVERTICULITIS [None]
